FAERS Safety Report 24290675 (Version 1)
Quarter: 2024Q3

REPORT INFORMATION
  Report Type: Spontaneous
  Country: PT (occurrence: PT)
  Receive Date: 20240906
  Receipt Date: 20240906
  Transmission Date: 20241016
  Serious: Yes (Hospitalization, Other)
  Sender: PFIZER
  Company Number: PT-PFIZER INC-202400249768

PATIENT
  Age: 69 Year
  Sex: Female

DRUGS (1)
  1. TRASTUZUMAB [Suspect]
     Active Substance: TRASTUZUMAB
     Indication: Invasive breast carcinoma
     Dosage: ( 3 YEARS AND, UP TO 2 MONTHS PREVIOUSLY)

REACTIONS (2)
  - Pulmonary toxicity [Unknown]
  - Non-cirrhotic portal hypertension [Recovered/Resolved]
